FAERS Safety Report 16499911 (Version 1)
Quarter: 2019Q3

REPORT INFORMATION
  Report Type: Spontaneous
  Country: IT (occurrence: IT)
  Receive Date: 20190701
  Receipt Date: 20190701
  Transmission Date: 20191004
  Serious: Yes (Other)
  Sender: FDA-Public Use
  Company Number: IT-HIKMA PHARMACEUTICALS USA INC.-IT-H14001-19-45817

PATIENT
  Age: 8 Year
  Sex: Male
  Weight: 59 kg

DRUGS (18)
  1. MABTHERA [Suspect]
     Active Substance: RITUXIMAB
     Indication: BURKITT^S LYMPHOMA
     Dosage: CYCLICAL
     Route: 042
     Dates: start: 20181001, end: 20181209
  2. BACTRIM [Concomitant]
     Active Substance: SULFAMETHOXAZOLE\TRIMETHOPRIM
     Indication: PRODUCT USED FOR UNKNOWN INDICATION
     Dosage: CYCLICAL
     Route: 048
  3. DECADRON [Concomitant]
     Active Substance: DEXAMETHASONE
     Indication: PRODUCT USED FOR UNKNOWN INDICATION
     Route: 048
     Dates: start: 20181121, end: 20181126
  4. METHOTREXATE. [Suspect]
     Active Substance: METHOTREXATE
     Indication: BURKITT^S LYMPHOMA
     Dosage: CYCLICAL
     Route: 037
     Dates: start: 20180925, end: 20181210
  5. METHOTREXATE. [Suspect]
     Active Substance: METHOTREXATE
     Dosage: CYCLICAL
     Route: 042
     Dates: start: 20181116, end: 20181210
  6. ETOPOSIDE. [Suspect]
     Active Substance: ETOPOSIDE
     Indication: BURKITT^S LYMPHOMA
     Dosage: CYCLICAL
     Route: 042
     Dates: start: 20181119, end: 20181120
  7. URBASON [Concomitant]
     Active Substance: METHYLPREDNISOLONE
     Indication: PRODUCT USED FOR UNKNOWN INDICATION
     Dosage: CYCLICAL
     Route: 037
     Dates: start: 20180925, end: 20181210
  8. UROMITEXAN [Concomitant]
     Active Substance: MESNA
     Indication: BURKITT^S LYMPHOMA
     Dosage: CYCLICAL
     Route: 042
     Dates: start: 20181116, end: 20181120
  9. CYTARABINE. [Suspect]
     Active Substance: CYTARABINE
     Dosage: CYCLICAL
     Route: 042
     Dates: start: 20181119, end: 20181120
  10. LASIX [Concomitant]
     Active Substance: FUROSEMIDE
     Indication: PRODUCT USED FOR UNKNOWN INDICATION
     Dosage: IN TOTAL
     Route: 042
     Dates: start: 20181115, end: 20181116
  11. ANTRA [Concomitant]
     Active Substance: OMEPRAZOLE
     Indication: PRODUCT USED FOR UNKNOWN INDICATION
     Route: 048
  12. DECADRON [Concomitant]
     Active Substance: DEXAMETHASONE
     Route: 042
     Dates: start: 20181116, end: 20181120
  13. VINCRISTINE [Suspect]
     Active Substance: VINCRISTINE
     Indication: BURKITT^S LYMPHOMA
     Dosage: CYCLICAL
     Route: 042
     Dates: start: 20181002, end: 20181210
  14. ZOFRAN [Concomitant]
     Active Substance: ONDANSETRON HYDROCHLORIDE
     Indication: PRODUCT USED FOR UNKNOWN INDICATION
     Route: 042
     Dates: start: 20181116, end: 20181120
  15. MYELOSTIM [Suspect]
     Active Substance: LENOGRASTIM
     Indication: APLASIA
     Route: 042
     Dates: start: 20181126, end: 20181129
  16. IFOSFAMIDE. [Suspect]
     Active Substance: IFOSFAMIDE
     Indication: BURKITT^S LYMPHOMA
     Dosage: CYCLICAL
     Route: 042
     Dates: start: 20181116, end: 20181120
  17. CYTARABINE. [Suspect]
     Active Substance: CYTARABINE
     Indication: BURKITT^S LYMPHOMA
     Dosage: CYCLICAL
     Route: 037
     Dates: start: 20180925, end: 20181210
  18. MYCOSTATIN [Concomitant]
     Active Substance: NYSTATIN
     Indication: PRODUCT USED FOR UNKNOWN INDICATION
     Route: 048

REACTIONS (3)
  - Abdominal pain [Recovered/Resolved]
  - Spinal pain [Recovered/Resolved]
  - Vomiting [Recovered/Resolved]

NARRATIVE: CASE EVENT DATE: 20181129
